FAERS Safety Report 4530176-7 (Version None)
Quarter: 2004Q4

REPORT INFORMATION
  Report Type: 
  Country: None (occurrence: None)
  Receive Date: 20041215
  Receipt Date: 20041207
  Transmission Date: 20050328
  Serious: Yes (Other)
  Sender: FDA-Public Use
  Company Number: HQWYE778507DEC04

PATIENT
  Sex: Male

DRUGS (2)
  1. SOMAC (PANTOPRAZOLE, UNSPEC) [Suspect]
  2. ALLOPURINOL [Concomitant]

REACTIONS (1)
  - RENAL FAILURE [None]
